FAERS Safety Report 11663715 (Version 1)
Quarter: 2015Q4

REPORT INFORMATION
  Report Type: Spontaneous
  Country: US (occurrence: None)
  Receive Date: 20151026
  Receipt Date: 20151026
  Transmission Date: 20160304
  Serious: Yes (Disabling)
  Sender: FDA-Public Use
  Company Number: None

PATIENT

DRUGS (1)
  1. ICY HOT [Suspect]
     Active Substance: MENTHOL\METHYL SALICYLATE
     Indication: INJURY
     Dosage: HALF A TIC TAC SIZE?ONLY USED ONE TIME?APPLIED TO A SURFACE, USUALLY THE SKIN
     Route: 061

REACTIONS (6)
  - Feeling of body temperature change [None]
  - Application site pain [None]
  - Application site hypoaesthesia [None]
  - Skin burning sensation [None]
  - Pain [None]
  - Nerve injury [None]

NARRATIVE: CASE EVENT DATE: 20151004
